FAERS Safety Report 21820723 (Version 1)
Quarter: 2023Q1

REPORT INFORMATION
  Report Type: Spontaneous
  Country: US (occurrence: US)
  Receive Date: 20230105
  Receipt Date: 20230105
  Transmission Date: 20230418
  Serious: No
  Sender: FDA-Public Use
  Company Number: US-SANOFI-01427459

PATIENT
  Age: 80 Year
  Sex: Female

DRUGS (1)
  1. DUPIXENT [Suspect]
     Active Substance: DUPILUMAB
     Indication: Asthma
     Dosage: ONE INJECTION BIM
     Dates: start: 2017

REACTIONS (2)
  - Procedural pain [Unknown]
  - Ligament rupture [Unknown]

NARRATIVE: CASE EVENT DATE: 20220101
